FAERS Safety Report 7953584-0 (Version None)
Quarter: 2011Q4

REPORT INFORMATION
  Report Type: 
  Country: None (occurrence: None)
  Receive Date: 20111202
  Receipt Date: 20111122
  Transmission Date: 20120403
  Serious: Yes (Hospitalization)
  Sender: FDA-Public Use
  Company Number: PHHO2011GB019725

PATIENT
  Sex: Male
  Weight: 74.6 kg

DRUGS (3)
  1. DOCETAXEL [Suspect]
     Indication: METASTASES TO BONE
     Dosage: UNK
     Dates: start: 20110804, end: 20111028
  2. PREDNISOLONE [Suspect]
     Indication: METASTASES TO BONE
     Dosage: UNK
     Dates: start: 20110804, end: 20111101
  3. ZOLEDRONIC [Suspect]
     Dosage: UNK
     Dates: start: 20110804, end: 20111028

REACTIONS (1)
  - NEUTROPENIC SEPSIS [None]
